FAERS Safety Report 6080455-X (Version None)
Quarter: 2009Q1

REPORT INFORMATION
  Report Type: 
  Country: None (occurrence: None)
  Receive Date: 20090217
  Receipt Date: 20090213
  Transmission Date: 20090719
  Serious: Yes (Life-Threatening, Other)
  Sender: FDA-Public Use
  Company Number: PHHY2009JP05330

PATIENT
  Age: 45 Year
  Sex: Male
  Weight: 75 kg

DRUGS (3)
  1. DIOVAN [Suspect]
     Indication: HYPERTENSION
     Dosage: 80 MG, BID
     Route: 048
     Dates: start: 20060601, end: 20080730
  2. ACTOS [Concomitant]
     Dosage: 30 MG, UNK
     Route: 048
  3. AMARYL [Concomitant]

REACTIONS (7)
  - ACUTE PRERENAL FAILURE [None]
  - ANURIA [None]
  - BLOOD CREATININE INCREASED [None]
  - BLOOD UREA INCREASED [None]
  - CIRCULATORY COLLAPSE [None]
  - DEHYDRATION [None]
  - SHOCK [None]
